FAERS Safety Report 4434944-1 (Version None)
Quarter: 2004Q3

REPORT INFORMATION
  Report Type: 
  Country: None (occurrence: None)
  Receive Date: 20040726
  Receipt Date: 20040330
  Transmission Date: 20050211
  Serious: No
  Sender: FDA-Public Use
  Company Number: US_0403101871

PATIENT
  Age: 86 Year
  Sex: Female

DRUGS (10)
  1. FORTEO [Suspect]
     Indication: OSTEOPOROSIS
     Dosage: 20 UG DAY
     Dates: start: 20040223
  2. FORTAZ (CEFTAZIDIME) [Concomitant]
  3. LOVENOX [Concomitant]
  4. CELEXA [Concomitant]
  5. NORVASC [Concomitant]
  6. XANAX [Concomitant]
  7. TIMOLOL MALEATE [Concomitant]
  8. XALATAN [Concomitant]
  9. DUONEB [Concomitant]
  10. COLACE (DOCUSATE SODIUM) [Concomitant]

REACTIONS (1)
  - MEDICATION ERROR [None]
